FAERS Safety Report 9869879 (Version 1)
Quarter: 2014Q1

REPORT INFORMATION
  Report Type: Spontaneous
  Country: FR (occurrence: None)
  Receive Date: 20140203
  Receipt Date: 20140203
  Transmission Date: 20141002
  Serious: Yes (Other)
  Sender: FDA-Public Use
  Company Number: 2014000016

PATIENT
  Age: 73 Year
  Sex: Male

DRUGS (11)
  1. ACEON [Suspect]
     Indication: PRODUCT USED FOR UNKNOWN INDICATION
     Route: 048
     Dates: start: 201210, end: 201212
  2. RAMIPRIL (RAMIPRIL) [Suspect]
     Indication: PRODUCT USED FOR UNKNOWN INDICATION
     Route: 048
     Dates: start: 20120101, end: 201210
  3. AMLOR (AMLODIPINE BESILATE) [Concomitant]
  4. HYPERIUM (RILMENIDINE PHOPHATE) [Concomitant]
  5. TRAMADOL (TRAMADOL) [Suspect]
     Indication: PRODUCT USED FOR UNKNOWN INDICATION
     Route: 048
     Dates: end: 201212
  6. TAHOR (ATORVASTATIN CALCIUM) [Concomitant]
  7. EFIENT (PRASUGREL HYDROCHLORIDE) [Concomitant]
  8. INIPOMP (PANTOPRAZOLE SODIUM) [Concomitant]
  9. LYRICA (PREGAMBLIN) [Concomitant]
  10. CETIRIZINE (CETIRIZINE) [Concomitant]
  11. GLYCEROL PARAFIN,LIQUID,WHITE SOFT PARAFIN (GLYCEROL) [Concomitant]

REACTIONS (3)
  - Pruritus generalised [None]
  - Urticaria [None]
  - Angioedema [None]
